FAERS Safety Report 14951391 (Version 2)
Quarter: 2018Q2

REPORT INFORMATION
  Report Type: Report from Study
  Country: GR (occurrence: GR)
  Receive Date: 20180530
  Receipt Date: 20180626
  Transmission Date: 20180711
  Serious: Yes (Hospitalization)
  Sender: FDA-Public Use
  Company Number: GR-MYLANLABS-2018M1034002

PATIENT
  Age: 81 Year
  Sex: Male

DRUGS (8)
  1. ENALAPRIL [Suspect]
     Active Substance: ENALAPRIL
     Dosage: CODE NOT BROKEN
     Route: 048
     Dates: start: 20170920, end: 20171029
  2. FUROSEMIDE. [Concomitant]
     Active Substance: FUROSEMIDE
     Indication: CARDIAC FAILURE
     Dosage: 120 MG, QD (40 MG, TID)
     Route: 048
     Dates: start: 1989
  3. ENALAPRIL [Suspect]
     Active Substance: ENALAPRIL
     Indication: CARDIAC FAILURE CHRONIC
     Dosage: CODE NOT BROKEN
     Route: 048
  4. ALLOPURINOL. [Concomitant]
     Active Substance: ALLOPURINOL
     Indication: BLOOD URIC ACID INCREASED
     Dosage: 300 MG, QD
     Route: 048
     Dates: start: 201705
  5. METOPROLOL. [Concomitant]
     Active Substance: METOPROLOL
     Indication: CARDIAC FAILURE
     Dosage: 50 MG, QD (25 MG, BID)
     Route: 048
     Dates: start: 1989
  6. EPLERENONE. [Concomitant]
     Active Substance: EPLERENONE
     Indication: CARDIAC FAILURE
     Dosage: 50 MG, QD
     Route: 048
     Dates: start: 201705
  7. SINTROM [Suspect]
     Active Substance: ACENOCOUMAROL
     Indication: ATRIAL FIBRILLATION
     Dosage: 2 MG, QD
     Route: 048
     Dates: start: 2007, end: 20171030
  8. PANTOPRAZOLE [Concomitant]
     Active Substance: PANTOPRAZOLE
     Indication: PROPHYLAXIS AGAINST GASTROINTESTINAL ULCER
     Dosage: 40 MG, QD
     Route: 048
     Dates: start: 2000

REACTIONS (2)
  - Bladder cancer [Recovered/Resolved with Sequelae]
  - Urinary bladder haemorrhage [Recovered/Resolved with Sequelae]

NARRATIVE: CASE EVENT DATE: 20171030
